FAERS Safety Report 14336274 (Version 3)
Quarter: 2018Q1

REPORT INFORMATION
  Report Type: Spontaneous
  Country: BR (occurrence: BR)
  Receive Date: 20171229
  Receipt Date: 20180130
  Transmission Date: 20180509
  Serious: Yes (Hospitalization, Other)
  Sender: FDA-Public Use
  Company Number: BR-ALEXION PHARMACEUTICALS INC.-A201714574

PATIENT
  Age: 24 Year
  Sex: Male

DRUGS (2)
  1. SOLIRIS [Suspect]
     Active Substance: ECULIZUMAB
     Dosage: UNK
     Route: 065
  2. SOLIRIS [Suspect]
     Active Substance: ECULIZUMAB
     Indication: PAROXYSMAL NOCTURNAL HAEMOGLOBINURIA
     Dosage: UNK
     Route: 065
     Dates: start: 20151201

REACTIONS (18)
  - Anaemia [Unknown]
  - Anxiety [Unknown]
  - Pain [Unknown]
  - Asthenia [Unknown]
  - Abdominal pain upper [Unknown]
  - Vomiting [Unknown]
  - Renal impairment [Unknown]
  - Haemolysis [Unknown]
  - Generalised oedema [Unknown]
  - Yellow skin [Unknown]
  - Hypersomnia [Unknown]
  - Dyspnoea [Unknown]
  - Feeding disorder [Unknown]
  - Fatigue [Unknown]
  - Face oedema [Unknown]
  - Blood lactate dehydrogenase increased [Unknown]
  - Myalgia [Unknown]
  - Abdominal pain [Unknown]

NARRATIVE: CASE EVENT DATE: 20171219
